FAERS Safety Report 24557070 (Version 2)
Quarter: 2024Q4

REPORT INFORMATION
  Report Type: Spontaneous
  Country: DE (occurrence: DE)
  Receive Date: 20241028
  Receipt Date: 20241105
  Transmission Date: 20250114
  Serious: Yes (Other)
  Sender: AUROBINDO
  Company Number: DE-BRISTOL-MYERS SQUIBB COMPANY-2024-145522

PATIENT
  Age: 76 Year
  Sex: Female
  Weight: 75 kg

DRUGS (32)
  1. OXALIPLATIN [Suspect]
     Active Substance: OXALIPLATIN
     Indication: Oesophageal adenocarcinoma
     Dosage: 100 MILLIGRAM (2 WEEK)
     Route: 042
     Dates: start: 20240510
  2. OPDIVO [Suspect]
     Active Substance: NIVOLUMAB
     Indication: Oesophageal adenocarcinoma
     Dosage: 240 MILLIGRAM (2 WEEK)
     Route: 042
     Dates: start: 20240510
  3. FLUOROURACIL [Suspect]
     Active Substance: FLUOROURACIL
     Indication: Oesophageal adenocarcinoma
     Dosage: 2750 MILLIGRAM (2 WEEK)
     Route: 042
     Dates: start: 20240510
  4. ENOXAPARIN SODIUM [Concomitant]
     Active Substance: ENOXAPARIN SODIUM
     Indication: Prophylaxis
     Dosage: 40 MILLIGRAM, ONCE A DAY
     Route: 058
     Dates: start: 20240528
  5. HUMAN RED BLOOD CELL [Concomitant]
     Active Substance: HUMAN RED BLOOD CELL
     Indication: Adverse event
     Dosage: UNK (0.5 DAYS)
     Route: 042
     Dates: start: 20240717, end: 20240717
  6. CARBIMAZOLE [Concomitant]
     Active Substance: CARBIMAZOLE
     Indication: Product used for unknown indication
     Dosage: 10 MILLIGRAM (0.5 DAYS)
     Route: 048
  7. PANTOPRAZOLE [Concomitant]
     Active Substance: PANTOPRAZOLE
     Indication: Prophylaxis
     Dosage: 40 MILLIGRAM (0.5 DAYS)
     Route: 048
     Dates: end: 20240626
  8. PANTOPRAZOLE [Concomitant]
     Active Substance: PANTOPRAZOLE
     Dosage: 40 MILLIGRAM, ONCE A DAY
     Route: 048
     Dates: start: 20240627
  9. SPIRONOLACTONE [Concomitant]
     Active Substance: SPIRONOLACTONE
     Indication: Product used for unknown indication
     Dosage: 25 MILLIGRAM, ONCE A DAY
     Route: 048
     Dates: start: 20240625
  10. DEXAMETHASONE [Concomitant]
     Active Substance: DEXAMETHASONE
     Indication: Prophylaxis
     Dosage: 12 MILLIGRAM, ONCE A DAY
     Route: 042
     Dates: start: 20240510
  11. VALSARTAN [Concomitant]
     Active Substance: VALSARTAN
     Indication: Product used for unknown indication
     Dosage: 40 MILLIGRAM (0.5 DAYS)
     Route: 048
     Dates: end: 20240626
  12. VALSARTAN [Concomitant]
     Active Substance: VALSARTAN
     Dosage: 40 MILLIGRAM (0.5 DAYS)
     Route: 048
     Dates: start: 20240627
  13. FUROSEMIDE [Concomitant]
     Active Substance: FUROSEMIDE
     Indication: Adverse event
     Dosage: 20 MILLIGRAM, ONCE A DAY
     Route: 042
     Dates: start: 20240612, end: 20240612
  14. FUROSEMIDE [Concomitant]
     Active Substance: FUROSEMIDE
     Dosage: 40 MILLIGRAM, ONCE A DAY
     Route: 042
     Dates: start: 20240613, end: 20240618
  15. NALOXONE HYDROCHLORIDE\TILIDINE HYDROCHLORIDE [Concomitant]
     Active Substance: NALOXONE HYDROCHLORIDE\TILIDINE HYDROCHLORIDE
     Indication: Product used for unknown indication
     Dosage: 50 MILLIGRAM, ONCE A DAY (10% 1MG/10ML)
     Route: 048
     Dates: start: 20240717
  16. METAMIZOLE [Concomitant]
     Active Substance: METAMIZOLE
     Indication: Product used for unknown indication
     Dosage: 1000 MILLIGRAM (0.25 DAYS)
     Route: 048
     Dates: start: 20240523, end: 20240612
  17. METAMIZOLE [Concomitant]
     Active Substance: METAMIZOLE
     Dosage: 500 MILLIGRAM (0.25 DAYS)
     Route: 048
     Dates: start: 20240625, end: 20240716
  18. GRANISETRON [Concomitant]
     Active Substance: GRANISETRON
     Indication: Prophylaxis
     Dosage: 1 MILLIGRAM, ONCE A DAY
     Route: 042
     Dates: start: 20240510
  19. LINEZOLID [Concomitant]
     Active Substance: LINEZOLID
     Indication: Adverse event
     Dosage: 600 MILLIGRAM (0.5 DAYS)
     Route: 048
     Dates: start: 20240624, end: 20240701
  20. LEUCOVORIN CALCIUM [Concomitant]
     Active Substance: LEUCOVORIN CALCIUM
     Indication: Product used for unknown indication
     Dosage: 400 MILLIGRAM/SQ. METER (2 WEEK)
     Route: 042
     Dates: start: 20240510
  21. AMPICILLIN [Concomitant]
     Active Substance: AMPICILLIN
     Indication: Adverse event
     Dosage: 2000 MILLIGRAM (0.33 DAYS)
     Route: 042
     Dates: start: 20240515, end: 20240517
  22. SULBACTAM [Concomitant]
     Active Substance: SULBACTAM
     Indication: Adverse event
     Dosage: 1000 MILLIGRAM (0.33 DAYS
     Route: 042
     Dates: start: 20240515, end: 20240517
  23. LEVOFLOXACIN [Concomitant]
     Active Substance: LEVOFLOXACIN
     Indication: Adverse event
     Dosage: 500 MILLIGRAM, ONCE A DAY
     Route: 048
     Dates: start: 20240517, end: 20240521
  24. BISOPROLOL [Concomitant]
     Active Substance: BISOPROLOL\BISOPROLOL FUMARATE
     Indication: Product used for unknown indication
     Dosage: 10 MILLIGRAM, ONCE A DAY
     Route: 048
     Dates: end: 20240611
  25. TORSEMIDE [Concomitant]
     Active Substance: TORSEMIDE
     Indication: Product used for unknown indication
     Dosage: 10 MILLIGRAM (0.33 DAYS)
     Route: 048
     Dates: start: 20240704
  26. TORSEMIDE [Concomitant]
     Active Substance: TORSEMIDE
     Dosage: 15 MILLIGRAM, ONCE A DAY
     Route: 048
     Dates: start: 20240619, end: 20240703
  27. TORSEMIDE [Concomitant]
     Active Substance: TORSEMIDE
     Dosage: 5 MILLIGRAM, ONCE A DAY
     Route: 048
  28. ACETAMINOPHEN [Concomitant]
     Active Substance: ACETAMINOPHEN
     Indication: Product used for unknown indication
     Dosage: 1000 MILLIGRAM (0.25 DAYS) (10% 1MG/10ML)
     Route: 048
     Dates: start: 20240717
  29. MAGNESIUM [Concomitant]
     Active Substance: MAGNESIUM
     Indication: Adverse event
     Dosage: 2 MILLIGRAM, ONCE A DAY (10% 1MG/10ML)
     Route: 042
     Dates: start: 20240612, end: 20240612
  30. DIGOXIN [Concomitant]
     Active Substance: DIGOXIN
     Indication: Adverse event
     Dosage: 0.5 MILLIGRAM, ONCE A DAY (10% 1MG/10ML)
     Route: 042
     Dates: start: 20240612, end: 20240612
  31. METOPROLOL TARTRATE [Concomitant]
     Active Substance: METOPROLOL TARTRATE
     Indication: Product used for unknown indication
     Dosage: 10 MILLIGRAM, ONCE A DAY
     Route: 042
     Dates: start: 20240612, end: 20240612
  32. METOPROLOL TARTRATE [Concomitant]
     Active Substance: METOPROLOL TARTRATE
     Dosage: 5 MILLIGRAM, ONCE A DAY
     Route: 042
     Dates: start: 20240612, end: 20240612

REACTIONS (2)
  - Bladder transitional cell carcinoma [Not Recovered/Not Resolved]
  - Urinary tract infection [Recovered/Resolved]

NARRATIVE: CASE EVENT DATE: 20240617
